FAERS Safety Report 19012827 (Version 54)
Quarter: 2023Q2

REPORT INFORMATION
  Report Type: Report from Study
  Country: US (occurrence: US)
  Receive Date: 20210316
  Receipt Date: 20230628
  Transmission Date: 20230722
  Serious: Yes (Hospitalization, Other)
  Sender: FDA-Public Use
  Company Number: US-TAKEDA-2020TUS044918

PATIENT
  Age: 53 Year
  Sex: Female

DRUGS (37)
  1. ICATIBANT [Suspect]
     Active Substance: ICATIBANT ACETATE
     Indication: Immune system disorder
     Dosage: 30 MILLIGRAM
     Route: 058
     Dates: start: 202008
  2. ICATIBANT [Suspect]
     Active Substance: ICATIBANT ACETATE
     Indication: Immune system disorder
     Dosage: 30 MILLIGRAM
     Route: 058
     Dates: start: 202008
  3. ICATIBANT [Suspect]
     Active Substance: ICATIBANT ACETATE
     Indication: Hereditary angioedema
     Dosage: 30 MILLIGRAM
     Route: 058
     Dates: start: 202010
  4. ICATIBANT [Suspect]
     Active Substance: ICATIBANT ACETATE
     Indication: Hereditary angioedema
     Dosage: 30 MILLIGRAM
     Route: 058
     Dates: start: 202010
  5. ICATIBANT [Suspect]
     Active Substance: ICATIBANT ACETATE
     Dosage: 30 MILLIGRAM
     Route: 058
     Dates: start: 20201013
  6. ICATIBANT [Suspect]
     Active Substance: ICATIBANT ACETATE
     Dosage: 30 MILLIGRAM
     Route: 058
     Dates: start: 20201013
  7. ICATIBANT [Suspect]
     Active Substance: ICATIBANT ACETATE
     Dosage: 30 MILLIGRAM
     Route: 058
     Dates: start: 20201014
  8. ICATIBANT [Suspect]
     Active Substance: ICATIBANT ACETATE
     Dosage: 30 MILLIGRAM
     Route: 058
     Dates: start: 20201014
  9. ICATIBANT [Suspect]
     Active Substance: ICATIBANT ACETATE
     Dosage: 30 MILLIGRAM, QD
     Route: 058
  10. ICATIBANT [Suspect]
     Active Substance: ICATIBANT ACETATE
     Dosage: 30 MILLIGRAM, QD
     Route: 058
  11. ICATIBANT [Suspect]
     Active Substance: ICATIBANT ACETATE
     Dosage: 300 MILLIGRAM, Q2WEEKS
     Route: 058
     Dates: start: 20201103
  12. ICATIBANT [Suspect]
     Active Substance: ICATIBANT ACETATE
     Dosage: 300 MILLIGRAM, Q2WEEKS
     Route: 058
     Dates: start: 20201103
  13. ICATIBANT [Suspect]
     Active Substance: ICATIBANT ACETATE
     Dosage: 300 MILLIGRAM, Q2WEEKS
     Route: 058
     Dates: start: 20201115
  14. ICATIBANT [Suspect]
     Active Substance: ICATIBANT ACETATE
     Dosage: 300 MILLIGRAM, Q2WEEKS
     Route: 058
     Dates: start: 20201115
  15. ICATIBANT [Suspect]
     Active Substance: ICATIBANT ACETATE
     Dosage: 30 MILLIGRAM
     Route: 058
  16. ICATIBANT [Suspect]
     Active Substance: ICATIBANT ACETATE
     Dosage: 30 MILLIGRAM
     Route: 058
  17. ICATIBANT [Suspect]
     Active Substance: ICATIBANT ACETATE
     Dosage: 30 MILLIGRAM
     Route: 058
  18. ICATIBANT [Suspect]
     Active Substance: ICATIBANT ACETATE
     Dosage: 30 MILLIGRAM
     Route: 058
  19. TAKHZYRO [Suspect]
     Active Substance: LANADELUMAB-FLYO
     Indication: Hereditary angioedema
     Dosage: 300 MILLIGRAM, Q2WEEKS
     Route: 058
     Dates: start: 20200311
  20. TAKHZYRO [Suspect]
     Active Substance: LANADELUMAB-FLYO
     Indication: Immune system disorder
     Dosage: 300 MILLIGRAM, Q2WEEKS
     Route: 058
     Dates: start: 20200811
  21. TAKHZYRO [Suspect]
     Active Substance: LANADELUMAB-FLYO
     Dosage: 300 MILLIGRAM, Q2WEEKS
     Route: 058
     Dates: start: 202010
  22. TAKHZYRO [Suspect]
     Active Substance: LANADELUMAB-FLYO
     Dosage: 300 MILLIGRAM, Q2WEEKS
     Route: 058
     Dates: start: 20201013
  23. TAKHZYRO [Suspect]
     Active Substance: LANADELUMAB-FLYO
     Dosage: 30 MILLIGRAM
     Route: 058
     Dates: start: 20201014
  24. TAKHZYRO [Suspect]
     Active Substance: LANADELUMAB-FLYO
     Dosage: 300 MILLIGRAM, Q2WEEKS
     Route: 058
     Dates: start: 202011
  25. TAKHZYRO [Suspect]
     Active Substance: LANADELUMAB-FLYO
     Dosage: 2 MILLILITER, Q2WEEKS
     Route: 058
     Dates: start: 20201103
  26. TAKHZYRO [Suspect]
     Active Substance: LANADELUMAB-FLYO
     Dosage: 300 MILLIGRAM, Q2WEEKS
     Route: 058
  27. TAKHZYRO [Suspect]
     Active Substance: LANADELUMAB-FLYO
     Dosage: 2 MILLILITER, 2/WEEK
     Route: 058
  28. TAKHZYRO [Suspect]
     Active Substance: LANADELUMAB-FLYO
     Dosage: 300 MILLIGRAM, Q2WEEKS
     Route: 058
     Dates: start: 20201104
  29. TAKHZYRO [Suspect]
     Active Substance: LANADELUMAB-FLYO
     Dosage: 300 MILLIGRAM, 2/WEEK
     Route: 058
  30. TAKHZYRO [Suspect]
     Active Substance: LANADELUMAB-FLYO
     Dosage: 2 MILLILITER, 2/WEEK
     Route: 058
     Dates: start: 20201105
  31. TAKHZYRO [Suspect]
     Active Substance: LANADELUMAB-FLYO
     Dosage: 300 MILLIGRAM, 2/WEEK
     Route: 058
     Dates: start: 20201114
  32. TAKHZYRO [Suspect]
     Active Substance: LANADELUMAB-FLYO
     Dosage: 300 MILLIGRAM, Q2WEEKS
     Route: 058
     Dates: start: 202012
  33. TAKHZYRO [Suspect]
     Active Substance: LANADELUMAB-FLYO
     Dosage: 300 MILLIGRAM, Q2WEEKS
     Route: 058
     Dates: start: 202201
  34. TAKHZYRO [Suspect]
     Active Substance: LANADELUMAB-FLYO
     Dosage: 300 MILLIGRAM, Q2WEEKS
     Route: 058
     Dates: start: 202202
  35. TAKHZYRO [Suspect]
     Active Substance: LANADELUMAB-FLYO
     Dosage: 300 MILLIGRAM, Q2WEEKS
     Route: 058
  36. HAEGARDA [Suspect]
     Active Substance: HUMAN C1-ESTERASE INHIBITOR
     Indication: Product used for unknown indication
     Dosage: UNK
     Route: 065
     Dates: end: 202111
  37. RUCONEST [Suspect]
     Active Substance: HUMAN C1-ESTERASE INHIBITOR
     Indication: Product used for unknown indication
     Dosage: UNK
     Route: 065

REACTIONS (32)
  - Intracranial aneurysm [Not Recovered/Not Resolved]
  - Hereditary angioedema [Recovered/Resolved]
  - Open fracture [Unknown]
  - Cerebrovascular accident [Unknown]
  - Cataract [Unknown]
  - Mast cell activation syndrome [Unknown]
  - Needle issue [Unknown]
  - Herpes zoster [Not Recovered/Not Resolved]
  - Infection [Unknown]
  - Cough [Recovered/Resolved]
  - Fall [Unknown]
  - Vision blurred [Unknown]
  - Drug ineffective [Unknown]
  - Confusional state [Unknown]
  - COVID-19 [Unknown]
  - Fatigue [Not Recovered/Not Resolved]
  - Lethargy [Unknown]
  - Vertigo [Unknown]
  - Migraine [Recovered/Resolved]
  - Drug hypersensitivity [Unknown]
  - Dyspepsia [Unknown]
  - Food allergy [Recovered/Resolved]
  - Stress [Unknown]
  - Sinus disorder [Unknown]
  - Illness [Unknown]
  - Abdominal distension [Unknown]
  - Tonsillitis [Unknown]
  - Nasopharyngitis [Unknown]
  - Nausea [Unknown]
  - Headache [Recovered/Resolved]
  - Dizziness [Unknown]
  - Injection site pain [Unknown]

NARRATIVE: CASE EVENT DATE: 20211218
